FAERS Safety Report 11107142 (Version 1)
Quarter: 2015Q2

REPORT INFORMATION
  Report Type: Spontaneous
  Country: US (occurrence: US)
  Receive Date: 20150512
  Receipt Date: 20150512
  Transmission Date: 20150821
  Serious: Yes (Other)
  Sender: FDA-Public Use
  Company Number: US-BAYER-2015-182794

PATIENT
  Age: 38 Year
  Sex: Female
  Weight: 68.9 kg

DRUGS (7)
  1. ADEMPAS [Suspect]
     Active Substance: RIOCIGUAT
     Indication: PULMONARY ARTERIAL HYPERTENSION
     Dosage: 2.5 MG, TID
     Route: 048
  2. REMODULIN [Suspect]
     Active Substance: TREPROSTINIL
     Indication: PULMONARY ARTERIAL HYPERTENSION
     Dosage: DAILY DOSE .075 ?G/KG
     Route: 042
     Dates: start: 20100120
  3. REMODULIN [Suspect]
     Active Substance: TREPROSTINIL
     Indication: PULMONARY ARTERIAL HYPERTENSION
     Dosage: UNK
     Route: 058
     Dates: start: 20100120
  4. REMODULIN [Suspect]
     Active Substance: TREPROSTINIL
     Indication: PULMONARY ARTERIAL HYPERTENSION
     Dosage: DAILY DOSE .075 ?G/KG
     Route: 042
     Dates: start: 20100120
  5. WARFARIN [Concomitant]
     Active Substance: WARFARIN
  6. SILDENAFIL CITRATE. [Concomitant]
     Active Substance: SILDENAFIL CITRATE
  7. OPSUMIT [Concomitant]
     Active Substance: MACITENTAN

REACTIONS (13)
  - Infusion site oedema [None]
  - Fatigue [None]
  - Dizziness [None]
  - Laceration [None]
  - Dyspnoea [None]
  - Constipation [None]
  - Hypotension [None]
  - Infusion site pain [None]
  - Syncope [None]
  - Device issue [None]
  - Erythema [None]
  - Flushing [None]
  - Road traffic accident [None]

NARRATIVE: CASE EVENT DATE: 20150129
